FAERS Safety Report 16853591 (Version 2)
Quarter: 2019Q3

REPORT INFORMATION
  Report Type: Spontaneous
  Country: US (occurrence: US)
  Receive Date: 20190926
  Receipt Date: 20190930
  Transmission Date: 20191005
  Serious: No
  Sender: FDA-Public Use
  Company Number: US-JNJFOC-20190917691

PATIENT
  Sex: Female

DRUGS (1)
  1. MENS ROGAINE EXTRA STRENGTH [Suspect]
     Active Substance: MINOXIDIL
     Indication: ALOPECIA
     Dosage: DIDN^T USE THE DROPPER
     Route: 061

REACTIONS (6)
  - Intentional product misuse [Unknown]
  - Rosacea [Unknown]
  - Application site reaction [Recovering/Resolving]
  - Product use issue [Unknown]
  - Erythema [Recovering/Resolving]
  - Headache [Recovered/Resolved]
